FAERS Safety Report 6030860-2 (Version None)
Quarter: 2009Q1

REPORT INFORMATION
  Report Type: 
  Country: None (occurrence: None)
  Receive Date: 20090106
  Receipt Date: 20081222
  Transmission Date: 20090719
  Serious: Yes (Hospitalization, Other)
  Sender: FDA-Public Use
  Company Number: 038780

PATIENT
  Age: 72 Year
  Sex: Female

DRUGS (1)
  1. AMIODARONE HCL [Suspect]
     Indication: ATRIAL FIBRILLATION
     Dosage: 800 MG/DAY,

REACTIONS (3)
  - DRUG TOXICITY [None]
  - LUNG DISORDER [None]
  - PULMONARY FIBROSIS [None]
